FAERS Safety Report 9090684 (Version 1)
Quarter: 2013Q1

REPORT INFORMATION
  Report Type: Report from Study
  Country: US (occurrence: US)
  Receive Date: 20130131
  Receipt Date: 20130131
  Transmission Date: 20140127
  Serious: No
  Sender: FDA-Public Use
  Company Number: US-ABBOTT-12P-163-1021826-00

PATIENT
  Sex: Female
  Weight: 62.65 kg

DRUGS (17)
  1. HUMIRA [Suspect]
     Indication: CROHN^S DISEASE
     Dates: start: 20110331
  2. CYMBALTA [Concomitant]
     Indication: DEPRESSION
  3. SEROQUEL [Concomitant]
     Indication: INSOMNIA
  4. SEROQUEL [Concomitant]
     Indication: DEPRESSION
  5. TOPAMAX [Concomitant]
     Indication: MIGRAINE PROPHYLAXIS
  6. PRAVASTATIN [Concomitant]
     Indication: BLOOD CHOLESTEROL INCREASED
  7. LEVOXYL [Concomitant]
     Indication: HYPOTHYROIDISM
  8. VITAMIN D [Concomitant]
     Indication: PRODUCT USED FOR UNKNOWN INDICATION
  9. IMITREX [Concomitant]
     Indication: MIGRAINE
  10. FIORICET [Concomitant]
     Indication: MIGRAINE
  11. ALEVE [Concomitant]
     Indication: MIGRAINE
  12. COMPAZINE [Concomitant]
     Indication: MIGRAINE
  13. KLONOPIN [Concomitant]
     Indication: ANXIETY
  14. COQ10 [Concomitant]
     Indication: PRODUCT USED FOR UNKNOWN INDICATION
  15. FISH OIL [Concomitant]
     Indication: PRODUCT USED FOR UNKNOWN INDICATION
  16. CALCIUM [Concomitant]
     Indication: PRODUCT USED FOR UNKNOWN INDICATION
  17. MULTIVITAMIN [Concomitant]
     Indication: PRODUCT USED FOR UNKNOWN INDICATION

REACTIONS (2)
  - Wrong technique in drug usage process [Unknown]
  - Injection site pain [Recovered/Resolved]
